FAERS Safety Report 8799149 (Version 1)
Quarter: 2012Q4

REPORT INFORMATION
  Report Type: 
  Country: US (occurrence: US)
  Receive Date: 20120920
  Receipt Date: 20120920
  Transmission Date: 20130627
  Serious: No
  Sender: FDA-Public Use
  Company Number: US-ASTRAZENECA-2012SE13542

PATIENT
  Age: 51 Year
  Sex: Male

DRUGS (10)
  1. ZESTRIL [Suspect]
     Route: 048
     Dates: start: 20120113, end: 20120113
  2. CRESTOR [Suspect]
     Route: 048
     Dates: start: 20110913
  3. CIALIS [Concomitant]
     Route: 048
     Dates: start: 20111013
  4. MULTIVITAMIN [Concomitant]
     Route: 048
  5. CHANTIX [Concomitant]
     Route: 048
     Dates: start: 20110628
  6. PLAVIX [Concomitant]
     Route: 048
     Dates: start: 20100803
  7. ASPIRIN [Concomitant]
     Route: 048
     Dates: start: 20100803
  8. LORTAB [Concomitant]
     Indication: PAIN
     Route: 048
     Dates: start: 20100628
  9. LORTAB [Concomitant]
     Indication: PAIN
     Route: 048
     Dates: start: 20100628
  10. COREG [Concomitant]
     Route: 048
     Dates: start: 20120113, end: 20120113

REACTIONS (9)
  - Dyspnoea exertional [Unknown]
  - Coronary artery disease [Unknown]
  - Hypertensive heart disease [Unknown]
  - Peripheral vascular disorder [Unknown]
  - Type V hyperlipidaemia [Unknown]
  - Back pain [Unknown]
  - Arthritis [Unknown]
  - Oedema peripheral [Unknown]
  - Joint swelling [Unknown]
